FAERS Safety Report 12305563 (Version 2)
Quarter: 2020Q3

REPORT INFORMATION
  Report Type: Spontaneous
  Country: JP (occurrence: JP)
  Receive Date: 20160426
  Receipt Date: 20200701
  Transmission Date: 20201102
  Serious: Yes (Death, Other)
  Sender: FDA-Public Use
  Company Number: JP-ACTELION-A-CH2016-134965

PATIENT
  Age: 69 Year
  Sex: Male

DRUGS (23)
  1. FEXOFENADINE HYDROCHLORIDE. [Concomitant]
     Active Substance: FEXOFENADINE HYDROCHLORIDE
  2. MAGMITT [Concomitant]
     Active Substance: MAGNESIUM OXIDE
  3. FUROSEMIDE. [Concomitant]
     Active Substance: FUROSEMIDE
  4. ADCIRCA [Concomitant]
     Active Substance: TADALAFIL
     Dosage: 40 MG, OD
     Route: 048
     Dates: start: 20160227, end: 20160404
  5. CALFINA [ALFACALCIDOL] [Concomitant]
     Active Substance: ALFACALCIDOL
  6. AZULFIDINE EN?TABS [Concomitant]
     Active Substance: SULFASALAZINE
  7. PREDONINE [Concomitant]
     Active Substance: PREDNISOLONE
  8. SALAZOPYRIN [Concomitant]
     Active Substance: SULFASALAZINE
  9. MOSAPRIDE CITRATE [Concomitant]
     Active Substance: MOSAPRIDE CITRATE
  10. OXYGEN. [Concomitant]
     Active Substance: OXYGEN
  11. SPIRONOLACTONE. [Concomitant]
     Active Substance: SPIRONOLACTONE
  12. REVATIO [Concomitant]
     Active Substance: SILDENAFIL CITRATE
  13. ONBREZ [Concomitant]
     Active Substance: INDACATEROL
  14. THIOLA [Concomitant]
     Active Substance: TIOPRONIN
  15. PARIET [Concomitant]
     Active Substance: RABEPRAZOLE SODIUM
  16. PROGRAF [Concomitant]
     Active Substance: TACROLIMUS
  17. DAIKENCHUTO [Concomitant]
     Active Substance: HERBALS
  18. PIMOBENDAN [Concomitant]
     Active Substance: PIMOBENDAN
  19. PREDNISOLONE. [Concomitant]
     Active Substance: PREDNISOLONE
  20. SOLANAX [Concomitant]
     Active Substance: ALPRAZOLAM
  21. OPSUMIT [Suspect]
     Active Substance: MACITENTAN
     Indication: PULMONARY ARTERIAL HYPERTENSION
     Dosage: 10 MG, OD
     Route: 048
     Dates: start: 20160216, end: 20160405
  22. ADCIRCA [Concomitant]
     Active Substance: TADALAFIL
     Indication: PULMONARY ARTERIAL HYPERTENSION
     Dosage: 20 MG, OD
     Route: 048
     Dates: start: 20160223, end: 20160226
  23. WARFARIN [WARFARIN POTASSIUM] [Concomitant]
     Active Substance: WARFARIN POTASSIUM

REACTIONS (3)
  - Pneumonia [Unknown]
  - Blood pressure decreased [Fatal]
  - Pulmonary hypertension [Fatal]

NARRATIVE: CASE EVENT DATE: 20160404
